FAERS Safety Report 4990414-3 (Version None)
Quarter: 2006Q2

REPORT INFORMATION
  Report Type: 
  Country: None (occurrence: None)
  Receive Date: 20060427
  Receipt Date: 20060201
  Transmission Date: 20061013
  Serious: Yes (Hospitalization)
  Sender: FDA-Public Use
  Company Number: 001#1#2006-00020

PATIENT
  Age: 80 Year
  Sex: Male

DRUGS (7)
  1. ALPROSTADIL [Suspect]
     Indication: PERIPHERAL ARTERIAL OCCLUSIVE DISEASE
     Dosage: 1.60 MICROGRAM/3 HOURS (IN 50ML NACL)
     Route: 041
     Dates: start: 20060105, end: 20060108
  2. RAMIPRIL [Concomitant]
  3. CARRIER-SOLUTION [Suspect]
     Indication: NECROSIS
     Dosage: 50 ML
     Route: 041
     Dates: start: 20060105, end: 20060108
  4. CARRIER-SOLUTION [Suspect]
     Indication: PERIPHERAL ARTERIAL OCCLUSIVE DISEASE
     Dosage: 50 ML
     Route: 041
     Dates: start: 20060105, end: 20060108
  5. STARLIX [Concomitant]
  6. ACARBOSE (ACARBOSE) [Concomitant]
  7. METFORMIN HCL [Concomitant]

REACTIONS (3)
  - ARTHRALGIA [None]
  - NECROSIS [None]
  - PULMONARY OEDEMA [None]
